FAERS Safety Report 22034522 (Version 1)
Quarter: 2023Q1

REPORT INFORMATION
  Report Type: Spontaneous
  Country: US (occurrence: None)
  Receive Date: 20230222
  Receipt Date: 20230222
  Transmission Date: 20230417
  Serious: Yes (Death)
  Sender: FDA-Public Use
  Company Number: None

PATIENT
  Age: 77 Year
  Sex: Female

DRUGS (2)
  1. NEORAL [Suspect]
     Active Substance: CYCLOSPORINE
     Indication: Liver transplant
     Dosage: OTHER QUANTITY : 1 CAP QAM 2 CAP QP;?FREQUENCY : TWICE A DAY;?
     Route: 048
     Dates: start: 20200903, end: 20230131
  2. MYCOPHENOLIC ACID [Suspect]
     Active Substance: MYCOPHENOLIC ACID
     Indication: Liver transplant
     Dosage: FREQUENCY : TWICE A DAY;?
     Route: 048
     Dates: start: 20200903, end: 20230131

REACTIONS (1)
  - Death [None]

NARRATIVE: CASE EVENT DATE: 20230131
